FAERS Safety Report 7014116-7 (Version None)
Quarter: 2010Q3

REPORT INFORMATION
  Report Type: 
  Country: None (occurrence: None)
  Receive Date: 20100927
  Receipt Date: 20100916
  Transmission Date: 20110219
  Serious: Yes (Other)
  Sender: FDA-Public Use
  Company Number: BR-BAXTER-2010BH023920

PATIENT
  Sex: Male

DRUGS (2)
  1. ANTIHEMOPHILIC FACTOR (HUMAN) [Suspect]
     Indication: HAEMOPHILIA
     Route: 065
  2. PROPLEX T [Suspect]
     Indication: HAEMOPHILIA
     Route: 065

REACTIONS (2)
  - HEPATITIS C [None]
  - HIV TEST POSITIVE [None]
